FAERS Safety Report 5481245-9 (Version None)
Quarter: 2007Q4

REPORT INFORMATION
  Report Type: 
  Country: None (occurrence: None)
  Receive Date: 20071005
  Receipt Date: 20071005
  Transmission Date: 20080405
  Serious: Yes (Hospitalization)
  Sender: FDA-Public Use
  Company Number: None

PATIENT
  Sex: Female
  Weight: 60 kg

DRUGS (6)
  1. CETUXIMAB [Suspect]
     Indication: PANCREATIC CARCINOMA
     Dosage: 250MG/M2 IV WEEKLY
     Route: 042
     Dates: start: 20070823
  2. CAPECITABINE [Suspect]
     Indication: PANCREATIC CARCINOMA
     Dosage: 850MG/M2 PO
     Route: 048
     Dates: start: 20070920, end: 20070926
  3. DURAGESIC-100 [Concomitant]
  4. HUMULIN INSULIN SLIDING SCALE [Concomitant]
  5. ATIVAN [Concomitant]
  6. MEGACE [Concomitant]

REACTIONS (4)
  - DIARRHOEA [None]
  - FAILURE TO THRIVE [None]
  - FATIGUE [None]
  - IMPAIRED SELF-CARE [None]
